FAERS Safety Report 8457033 (Version 2)
Quarter: 2012Q4

REPORT INFORMATION
  Report Type: 
  Country: US (occurrence: US)
  Receive Date: 20120313
  Receipt Date: 20121231
  Transmission Date: 20130627
  Serious: Yes (Other)
  Sender: FDA-Public Use
  Company Number: PHEH2012US005466

PATIENT
  Sex: Female

DRUGS (5)
  1. DIOVAN [Suspect]
  2. DIOVAN HCT [Suspect]
     Dosage: 1 DF (160/12.5 mg) daily
     Route: 048
  3. ASPIRIN [Concomitant]
  4. PREVACID [Concomitant]
  5. IBUPROFEN [Concomitant]

REACTIONS (4)
  - Fall [Unknown]
  - Urine output increased [Unknown]
  - Groin pain [Unknown]
  - Fear of falling [Unknown]
